FAERS Safety Report 16817523 (Version 1)
Quarter: 2019Q3

REPORT INFORMATION
  Report Type: Report from Study
  Country: US (occurrence: US)
  Receive Date: 20190917
  Receipt Date: 20190917
  Transmission Date: 20191005
  Serious: Yes (Hospitalization)
  Sender: FDA-Public Use
  Company Number: US-BAYER-2019-167484

PATIENT
  Age: 82 Year
  Sex: Female

DRUGS (1)
  1. ADEMPAS [Suspect]
     Active Substance: RIOCIGUAT
     Dosage: 0.5 MG
     Dates: start: 20190422, end: 20190719

REACTIONS (3)
  - Oesophagitis [Unknown]
  - Gastritis [None]
  - Pancreatitis [None]

NARRATIVE: CASE EVENT DATE: 2019
